FAERS Safety Report 14698257 (Version 1)
Quarter: 2018Q1

REPORT INFORMATION
  Report Type: Report from Study
  Country: US (occurrence: US)
  Receive Date: 20180330
  Receipt Date: 20180330
  Transmission Date: 20180509
  Serious: Yes (Other)
  Sender: FDA-Public Use
  Company Number: US-ASTRAZENECA-2018SE13318

PATIENT
  Sex: Female

DRUGS (1)
  1. TAGRISSO [Suspect]
     Active Substance: OSIMERTINIB
     Indication: MALIGNANT MELANOMA
     Route: 048
     Dates: start: 20180105

REACTIONS (11)
  - Stomatitis [Recovered/Resolved]
  - Hair texture abnormal [Unknown]
  - Epistaxis [Recovered/Resolved]
  - Product use in unapproved indication [Unknown]
  - Blister [Unknown]
  - Off label use [Unknown]
  - Dry skin [Unknown]
  - Gingival ulceration [Recovered/Resolved]
  - Haemoptysis [Recovered/Resolved]
  - Chest pain [Unknown]
  - Musculoskeletal pain [Unknown]
